FAERS Safety Report 19399859 (Version 4)
Quarter: 2021Q3

REPORT INFORMATION
  Report Type: Report from Study
  Country: CN (occurrence: CN)
  Receive Date: 20210610
  Receipt Date: 20210729
  Transmission Date: 20211014
  Serious: Yes (Hospitalization)
  Sender: FDA-Public Use
  Company Number: CN-TAKEDA-2021TUS034803

PATIENT
  Age: 50 Year
  Sex: Female

DRUGS (35)
  1. COMPOUND AMINO ACID INJECTION (18AA?I) [Concomitant]
     Indication: PROPHYLAXIS
     Dosage: 20.65 GRAM
     Route: 042
     Dates: start: 20210503, end: 20210503
  2. RECOMBINANT HUMAN GRANULOCYTE COLONY STIMULATING FACTOR [Concomitant]
     Active Substance: GRANULOCYTE COLONY-STIMULATING FACTOR NOS
     Dosage: 150 MICROGRAM
     Route: 030
     Dates: start: 20210518, end: 20210518
  3. DIPHENHYDRAMINE HYDROCHLORIDE. [Concomitant]
     Active Substance: DIPHENHYDRAMINE HYDROCHLORIDE
     Indication: ANTIEMETIC SUPPORTIVE CARE
     Dosage: 20 MILLIGRAM
     Route: 058
     Dates: start: 20210521, end: 20210521
  4. BUDESONIDE. [Concomitant]
     Active Substance: BUDESONIDE
     Indication: UPPER RESPIRATORY TRACT INFECTION
     Dosage: 1 MILLIGRAM, BID
     Route: 055
     Dates: start: 20210523, end: 20210528
  5. RECOMBINANT HUMAN GRANULOCYTE COLONY STIMULATING FACTOR [Concomitant]
     Active Substance: GRANULOCYTE COLONY-STIMULATING FACTOR NOS
     Dosage: 150 MICROGRAM
     Route: 058
     Dates: start: 20210526, end: 20210526
  6. COMPOUND GLYCYRRHIZIN [Concomitant]
     Indication: PROPHYLAXIS
     Dosage: 160 MILLIGRAM, QD
     Route: 042
     Dates: start: 20210514, end: 20210528
  7. CALCIUM GLUCONATE. [Concomitant]
     Active Substance: CALCIUM GLUCONATE
     Indication: PROPHYLAXIS
     Dosage: 10 MILLILITER
     Route: 042
     Dates: start: 20210518, end: 20210518
  8. IMATINIB. [Suspect]
     Active Substance: IMATINIB MESYLATE
     Indication: PHILADELPHIA POSITIVE ACUTE LYMPHOCYTIC LEUKAEMIA
     Dosage: 600 MILLIGRAM, QD
     Route: 048
     Dates: start: 20210416
  9. DEXAMETHASONE. [Suspect]
     Active Substance: DEXAMETHASONE
     Indication: PHILADELPHIA POSITIVE ACUTE LYMPHOCYTIC LEUKAEMIA
     Dosage: 5 MILLIGRAM
     Route: 037
     Dates: start: 20210416
  10. BICYCLOL [Concomitant]
     Active Substance: BICYCLOL
     Indication: PROPHYLAXIS
     Dosage: 50 MILLIGRAM, QD
     Route: 048
     Dates: start: 20210503, end: 20210507
  11. RECOMBINANT HUMAN GRANULOCYTE COLONY STIMULATING FACTOR [Concomitant]
     Active Substance: GRANULOCYTE COLONY-STIMULATING FACTOR NOS
     Indication: PROPHYLAXIS
     Dosage: 300 MICROGRAM
     Route: 058
     Dates: start: 20210506, end: 20210506
  12. SODIUM BICARBONATE. [Concomitant]
     Active Substance: SODIUM BICARBONATE
     Indication: ENZYME INHIBITION
     Dosage: 100 MILLILITER, QD
     Route: 042
     Dates: start: 20210514, end: 20210521
  13. FAMITINIB [Concomitant]
     Active Substance: FAMITINIB
     Indication: PROPHYLAXIS
     Dosage: 20 MILLIGRAM, QD
     Route: 042
     Dates: start: 20210514, end: 20210520
  14. LACTULOSE. [Concomitant]
     Active Substance: LACTULOSE
     Indication: CONSTIPATION
     Dosage: 30 MILLILITER, QD
     Route: 048
     Dates: start: 20210516
  15. RED BLOOD CELLS [Concomitant]
     Active Substance: HUMAN RED BLOOD CELL
     Indication: ANAEMIA
     Dosage: UNK, BID
     Route: 042
     Dates: start: 20210518, end: 20210518
  16. IBUPROFEN. [Concomitant]
     Active Substance: IBUPROFEN
     Indication: PYREXIA
     Dosage: 0.15 GRAM
     Route: 048
     Dates: start: 20210524, end: 20210524
  17. CYTARABINE. [Suspect]
     Active Substance: CYTARABINE
     Indication: PHILADELPHIA POSITIVE ACUTE LYMPHOCYTIC LEUKAEMIA
     Dosage: 50 MILLIGRAM
     Route: 037
     Dates: start: 20210416
  18. VINCRISTINE [Suspect]
     Active Substance: VINCRISTINE
     Indication: PHILADELPHIA POSITIVE ACUTE LYMPHOCYTIC LEUKAEMIA
     Dosage: 1.4 MILLIGRAM/SQ. METER
     Route: 042
     Dates: start: 20210416
  19. VORICONAZOLE. [Concomitant]
     Active Substance: VORICONAZOLE
     Dosage: 200 MILLIGRAM, Q12H
     Route: 048
     Dates: start: 20210514, end: 20210524
  20. CHLORPHENAMINE MALEATE [Concomitant]
     Active Substance: CHLORPHENIRAMINE MALEATE
     Indication: ALLERGY PROPHYLAXIS
     Dosage: 8 MILLIGRAM
     Route: 048
     Dates: start: 20210519, end: 20210519
  21. DEXAMETHASONE. [Suspect]
     Active Substance: DEXAMETHASONE
     Indication: PHILADELPHIA POSITIVE ACUTE LYMPHOCYTIC LEUKAEMIA
     Dosage: 40 MILLIGRAM
     Route: 048
     Dates: start: 20210416
  22. MOXIFLOXACIN HYDROCHLORIDE AND SODIUM CHLORIDE [Concomitant]
     Active Substance: MOXIFLOXACIN HYDROCHLORIDE
     Indication: INFECTION PROPHYLAXIS
     Dosage: 0.40 GRAM, QD
     Route: 042
     Dates: start: 20210514, end: 20210524
  23. ESTAZOLAM. [Concomitant]
     Active Substance: ESTAZOLAM
     Indication: INSOMNIA
     Dosage: 1 MILLIGRAM, QD
     Route: 048
     Dates: start: 20210515, end: 20210523
  24. IPRATROPIUM BROMIDE. [Concomitant]
     Active Substance: IPRATROPIUM BROMIDE
     Indication: UPPER RESPIRATORY TRACT INFECTION
     Dosage: 500 MICROGRAM, BID
     Route: 055
     Dates: start: 20210523, end: 20210528
  25. CEFOXITIN SODIUM [Concomitant]
     Active Substance: CEFOXITIN SODIUM
     Indication: UPPER RESPIRATORY TRACT INFECTION
     Dosage: 2 GRAM, Q8HR
     Route: 042
     Dates: start: 20210524, end: 20210528
  26. LIDOCAINE HYDROCHLORIDE. [Concomitant]
     Active Substance: LIDOCAINE HYDROCHLORIDE
     Dosage: 5 MILLILITER
     Route: 058
     Dates: start: 20210527, end: 20210527
  27. OMEPRAZOLE SODIUM [Concomitant]
     Active Substance: OMEPRAZOLE SODIUM
     Indication: ANTIEMETIC SUPPORTIVE CARE
     Dosage: 40 MILLIGRAM, BID
     Route: 042
     Dates: start: 20210521, end: 20210528
  28. METHOTREXATE. [Suspect]
     Active Substance: METHOTREXATE
     Indication: PHILADELPHIA POSITIVE ACUTE LYMPHOCYTIC LEUKAEMIA
     Dosage: 15 MILLIGRAM
     Route: 037
     Dates: start: 20210416
  29. SPIRONOLACTONE. [Concomitant]
     Active Substance: SPIRONOLACTONE
     Indication: POLYURIA
     Dosage: 20 MILLIGRAM, QD
     Route: 048
     Dates: start: 20210514, end: 20210528
  30. MAREN SOFT CAPSULES [Concomitant]
     Active Substance: CANNABIS SATIVA SEED\HERBALS
     Indication: CONSTIPATION
     Dosage: 1 GRAM
     Route: 048
     Dates: start: 20210516, end: 20210516
  31. LIDOCAINE HYDROCHLORIDE. [Concomitant]
     Active Substance: LIDOCAINE HYDROCHLORIDE
     Indication: PROPHYLAXIS
     Dosage: 5 MILLILITER
     Route: 058
     Dates: start: 20210518, end: 20210518
  32. METOCLOPRAMIDE HYDROCHLORIDE. [Concomitant]
     Active Substance: METOCLOPRAMIDE HYDROCHLORIDE
     Indication: ANTIEMETIC SUPPORTIVE CARE
     Dosage: 20 MILLIGRAM, QD
     Route: 058
     Dates: start: 20210521, end: 20210521
  33. VORICONAZOLE. [Concomitant]
     Active Substance: VORICONAZOLE
     Indication: ANTIFUNGAL PROPHYLAXIS
     Dosage: 200 MILLIGRAM
     Route: 048
     Dates: start: 20210430, end: 20210430
  34. HYDROCHLOROTHIAZIDE. [Concomitant]
     Active Substance: HYDROCHLOROTHIAZIDE
     Indication: POLYURIA
     Dosage: 25 MILLIGRAM, QD
     Route: 048
     Dates: start: 20210514, end: 20210528
  35. PALONOSETRON HYDROCHLORIDE. [Concomitant]
     Active Substance: PALONOSETRON HYDROCHLORIDE
     Indication: ANTIEMETIC SUPPORTIVE CARE
     Dosage: 0.25 MILLIGRAM, 1/WEEK
     Route: 042
     Dates: start: 20210514, end: 20210521

REACTIONS (1)
  - Gastrointestinal disorder [Recovered/Resolved]

NARRATIVE: CASE EVENT DATE: 20210531
